FAERS Safety Report 6741725-2 (Version None)
Quarter: 2010Q2

REPORT INFORMATION
  Report Type: 
  Country: None (occurrence: None)
  Receive Date: 20100526
  Receipt Date: 20100518
  Transmission Date: 20101027
  Serious: Yes (Hospitalization)
  Sender: FDA-Public Use
  Company Number: HU-ELI_LILLY_AND_COMPANY-HU201005005158

PATIENT
  Age: 35 Year
  Sex: Female

DRUGS (5)
  1. ZYPADHERA [Suspect]
     Indication: SCHIZOPHRENIA
     Dosage: 210 MG, 2/W
     Route: 030
     Dates: start: 20100201, end: 20100401
  2. ZYPADHERA [Suspect]
     Dosage: 300 MG, MONTHLY (1/M)
     Route: 030
     Dates: start: 20100401, end: 20100505
  3. ZYPADHERA [Suspect]
     Dosage: 300 MG, MONTHLY (1/M)
     Route: 030
  4. ZYPREXA [Suspect]
     Indication: SCHIZOPHRENIA
     Dosage: 10 MG, DAILY (1/D)
     Route: 048
     Dates: start: 20100201, end: 20100101
  5. LITHIUM CARBONATE [Concomitant]
     Dosage: 500+250 MG DAILY (1/D)
     Route: 048
     Dates: start: 20100201, end: 20100101

REACTIONS (2)
  - AKATHISIA [None]
  - SCHIZOPHRENIA [None]
